FAERS Safety Report 6566887-1 (Version None)
Quarter: 2010Q1

REPORT INFORMATION
  Report Type: 
  Country: None (occurrence: None)
  Receive Date: 20100202
  Receipt Date: 20100127
  Transmission Date: 20100710
  Serious: Yes (Other)
  Sender: FDA-Public Use
  Company Number: US-GENENTECH-297393

PATIENT
  Sex: Female
  Weight: 28.4 kg

DRUGS (2)
  1. SOMATROPIN [Suspect]
     Indication: NOONAN SYNDROME
     Dosage: UNK, ^7 INJECTIONS PER WEEK^
     Dates: start: 20090225
  2. IMIPRAMINE [Concomitant]
     Indication: DRUG USE FOR UNKNOWN INDICATION

REACTIONS (1)
  - FRACTURE [None]
